FAERS Safety Report 8891872 (Version 1)
Quarter: 2012Q4

REPORT INFORMATION
  Report Type: 
  Country: US (occurrence: US)
  Receive Date: 20121107
  Receipt Date: 20121107
  Transmission Date: 20130627
  Serious: No
  Sender: FDA-Public Use
  Company Number: US-AMGEN-USASP2011058364

PATIENT
  Age: 61 Year
  Sex: Female

DRUGS (10)
  1. ENBREL [Suspect]
     Indication: PRODUCT USED FOR UNKNOWN INDICATION
     Dosage: 50 mg, qwk
  2. LIPITOR [Concomitant]
     Dosage: 20 mg, UNK
  3. TERAZOSIN [Concomitant]
     Dosage: 1 mg, UNK
  4. HYDROCHLOROTH [Concomitant]
     Dosage: 25 mg, UNK
  5. TOPROL [Concomitant]
     Dosage: 25 mg, UNK
  6. NEXIUM                             /01479302/ [Concomitant]
     Dosage: 20 mg, UNK
  7. KLOR-CON M15 [Concomitant]
     Dosage: UNK
  8. MOBIC [Concomitant]
     Dosage: 15 mg, UNK
  9. MAGNESIUM [Concomitant]
     Dosage: 64 mg, UNK
  10. ASPIRIN E.C [Concomitant]
     Dosage: 81 mg, UNK

REACTIONS (1)
  - Nasopharyngitis [Unknown]
